FAERS Safety Report 6409200-2 (Version None)
Quarter: 2009Q4

REPORT INFORMATION
  Report Type: 
  Country: None (occurrence: None)
  Receive Date: 20091021
  Receipt Date: 20091013
  Transmission Date: 20100525
  Serious: Yes (Hospitalization, Other)
  Sender: FDA-Public Use
  Company Number: PHHY2009MX41772

PATIENT
  Sex: Male

DRUGS (4)
  1. DIOVAN HCT [Suspect]
     Indication: HYPERTENSION
     Dosage: 1 DF (160/12.5MG) PER DAY
     Route: 048
     Dates: start: 20090201, end: 20090910
  2. DIOVAN HCT [Suspect]
     Dosage: UNK
     Dates: end: 20090919
  3. DIOVAN HCT [Suspect]
     Dosage: 1 DF (160/12.5 MG) PER DAY
     Route: 048
     Dates: start: 20090924
  4. ARTOSIN [Concomitant]
     Indication: DIABETES MELLITUS
     Dosage: UNK
     Dates: end: 20090919

REACTIONS (5)
  - ABDOMINAL PAIN [None]
  - FEELING ABNORMAL [None]
  - HYPERTENSION [None]
  - MYOCARDIAL INFARCTION [None]
  - TREATMENT NONCOMPLIANCE [None]
